FAERS Safety Report 6936683-1 (Version None)
Quarter: 2010Q3

REPORT INFORMATION
  Report Type: 
  Country: None (occurrence: None)
  Receive Date: 20100823
  Receipt Date: 20100817
  Transmission Date: 20110219
  Serious: Yes (Death)
  Sender: FDA-Public Use
  Company Number: FR-ROCHE-721967

PATIENT
  Age: 81 Year
  Sex: Female
  Weight: 56 kg

DRUGS (2)
  1. CAPECITABINE [Suspect]
     Route: 065
     Dates: start: 20071016
  2. CAPECITABINE [Suspect]
     Dosage: DOSAGE INCREASED
     Route: 065

REACTIONS (1)
  - INTESTINAL OBSTRUCTION [None]
